FAERS Safety Report 12245094 (Version 2)
Quarter: 2016Q2

REPORT INFORMATION
  Report Type: Spontaneous
  Country: US (occurrence: US)
  Receive Date: 20160407
  Receipt Date: 20160419
  Transmission Date: 20160815
  Serious: No
  Sender: FDA-Public Use
  Company Number: US-TEVA-626918USA

PATIENT
  Age: 51 Year
  Sex: Male

DRUGS (13)
  1. MAXALT [Concomitant]
     Active Substance: RIZATRIPTAN BENZOATE
  2. PERCOCET [Concomitant]
     Active Substance: ACETAMINOPHEN\OXYCODONE HYDROCHLORIDE
  3. FLEXERIL [Concomitant]
     Active Substance: CYCLOBENZAPRINE HYDROCHLORIDE
  4. LAMICTAL [Concomitant]
     Active Substance: LAMOTRIGINE
  5. LISINOPRIL. [Concomitant]
     Active Substance: LISINOPRIL
  6. NAPROXEN. [Concomitant]
     Active Substance: NAPROXEN
  7. MIRAPEX [Concomitant]
     Active Substance: PRAMIPEXOLE DIHYDROCHLORIDE
  8. REGLAN [Concomitant]
     Active Substance: METOCLOPRAMIDE HYDROCHLORIDE
  9. BOTOX [Concomitant]
     Active Substance: ONABOTULINUMTOXINA
  10. VALIUM [Concomitant]
     Active Substance: DIAZEPAM
  11. RELPAX [Concomitant]
     Active Substance: ELETRIPTAN HYDROBROMIDE
  12. ZECUITY [Suspect]
     Active Substance: SUMATRIPTAN SUCCINATE
     Indication: MIGRAINE
     Route: 062
     Dates: start: 20151120, end: 20151120
  13. XANAX [Concomitant]
     Active Substance: ALPRAZOLAM

REACTIONS (4)
  - Application site pain [Recovered/Resolved]
  - Nausea [Recovered/Resolved]
  - Application site rash [Recovered/Resolved]
  - Application site swelling [Recovered/Resolved]

NARRATIVE: CASE EVENT DATE: 20151120
